FAERS Safety Report 9759662 (Version 3)
Quarter: 2015Q3

REPORT INFORMATION
  Report Type: Spontaneous
  Country: None (occurrence: US)
  Receive Date: 20131216
  Receipt Date: 20150806
  Transmission Date: 20151125
  Serious: No
  Sender: FDA-Public Use
  Company Number: US-GILEAD-2010-0028475

PATIENT
  Age: 67 Year
  Sex: Female
  Weight: 57.61 kg

DRUGS (33)
  1. VITAMIN D [Concomitant]
     Active Substance: CHOLECALCIFEROL
  2. ALBUTEROL. [Concomitant]
     Active Substance: ALBUTEROL
  3. MILK OF MAG [Concomitant]
  4. NEURONTIN [Concomitant]
     Active Substance: GABAPENTIN
  5. ZOCOR [Concomitant]
     Active Substance: SIMVASTATIN
  6. REVATIO [Concomitant]
     Active Substance: SILDENAFIL CITRATE
  7. ALDACTONE [Concomitant]
     Active Substance: SPIRONOLACTONE
  8. NASACORT [Concomitant]
     Active Substance: TRIAMCINOLONE ACETONIDE
  9. GLUCOPHAGE [Concomitant]
     Active Substance: METFORMIN HYDROCHLORIDE
  10. L-ARGININE [Concomitant]
     Active Substance: ARGININE
  11. CITALOPRAM [Concomitant]
     Active Substance: CITALOPRAM HYDROBROMIDE
  12. LEXAPRO [Concomitant]
     Active Substance: ESCITALOPRAM OXALATE
  13. LANOXIN [Concomitant]
     Active Substance: DIGOXIN
  14. AMOXICILLIN. [Concomitant]
     Active Substance: AMOXICILLIN
  15. LANTUS [Concomitant]
     Active Substance: INSULIN GLARGINE
  16. SODIUM CHLORIDE. [Concomitant]
     Active Substance: SODIUM CHLORIDE
  17. RESTORIL [Concomitant]
     Active Substance: TEMAZEPAM
  18. MAGNESIUM [Concomitant]
     Active Substance: MAGNESIUM
  19. CETRIZINE [Concomitant]
     Active Substance: CETIRIZINE HYDROCHLORIDE
  20. POTASSIUM CHLORIDE. [Concomitant]
     Active Substance: POTASSIUM CHLORIDE
  21. XANAX [Concomitant]
     Active Substance: ALPRAZOLAM
  22. PRILOSEC [Concomitant]
     Active Substance: OMEPRAZOLE MAGNESIUM
  23. NIFEREX [Concomitant]
     Active Substance: IRON\POLYSACCHARIDES
  24. ISOSORBIDE. [Concomitant]
     Active Substance: ISOSORBIDE
  25. LETAIRIS [Suspect]
     Active Substance: AMBRISENTAN
     Indication: PULMONARY ARTERIAL HYPERTENSION
     Route: 048
     Dates: start: 20091109
  26. ALPRAZOLAM. [Concomitant]
     Active Substance: ALPRAZOLAM
  27. DIGOXIN. [Concomitant]
     Active Substance: DIGOXIN
  28. IPRATROPIUM BROMIDE/SALBUTAMOL SULFATE [Concomitant]
  29. COZAAR [Concomitant]
     Active Substance: LOSARTAN POTASSIUM
  30. KEPPRA [Concomitant]
     Active Substance: LEVETIRACETAM
  31. DULCOLAX [Concomitant]
     Active Substance: BISACODYL OR DOCUSATE SODIUM
  32. WELLBUTRIN [Concomitant]
     Active Substance: BUPROPION HYDROCHLORIDE
  33. HYDROCHLOROTHIAZIDE. [Concomitant]
     Active Substance: HYDROCHLOROTHIAZIDE

REACTIONS (1)
  - Gastrointestinal motility disorder [Unknown]
